FAERS Safety Report 5094286-0 (Version None)
Quarter: 2006Q3

REPORT INFORMATION
  Report Type: 
  Country: None (occurrence: None)
  Receive Date: 20060831
  Receipt Date: 20060830
  Transmission Date: 20061208
  Serious: Yes (Other)
  Sender: FDA-Public Use
  Company Number: US-GLAXOSMITHKLINE-A0618594A

PATIENT
  Age: 51 Year
  Sex: Female

DRUGS (7)
  1. COMMIT [Suspect]
     Indication: SMOKING CESSATION THERAPY
     Route: 002
     Dates: start: 20060202
  2. NICODERM CQ [Suspect]
     Indication: SMOKING CESSATION THERAPY
     Dosage: 3PAT PER DAY
     Dates: start: 20060202, end: 20060203
  3. EVISTA [Concomitant]
  4. LOPROX [Concomitant]
  5. DERMA-SMOOTHE [Concomitant]
  6. CICLOPIROX OLAMINE [Concomitant]
  7. OLUX [Concomitant]

REACTIONS (12)
  - APPLICATION SITE DERMATITIS [None]
  - APPLICATION SITE IRRITATION [None]
  - APPLICATION SITE PARAESTHESIA [None]
  - APPLICATION SITE PRURITUS [None]
  - APPLICATION SITE WARMTH [None]
  - DEPENDENCE [None]
  - GINGIVAL BLEEDING [None]
  - INSOMNIA [None]
  - INTENTIONAL DRUG MISUSE [None]
  - OVERDOSE [None]
  - PHARYNGOLARYNGEAL PAIN [None]
  - PSORIASIS [None]
